FAERS Safety Report 25384999 (Version 1)
Quarter: 2025Q2

REPORT INFORMATION
  Report Type: Spontaneous
  Country: US (occurrence: US)
  Receive Date: 20250602
  Receipt Date: 20250602
  Transmission Date: 20250717
  Serious: No
  Sender: BAYER HEALTHCARE LLC
  Company Number: US-BAYER-2025A069713

PATIENT
  Age: 82 Year
  Sex: Female
  Weight: 46.7 kg

DRUGS (17)
  1. CLARITIN [Suspect]
     Active Substance: LORATADINE
     Indication: Seasonal allergy
  2. REMODULIN [Suspect]
     Active Substance: TREPROSTINIL
     Indication: Pulmonary arterial hypertension
  3. OPSUMIT [Concomitant]
     Active Substance: MACITENTAN
  4. BUMETANIDE [Concomitant]
     Active Substance: BUMETANIDE
  5. POTASSIUM CHLORIDE [Concomitant]
     Active Substance: POTASSIUM CHLORIDE
  6. GABAPENTIN [Concomitant]
     Active Substance: GABAPENTIN
  7. HYDROXYCHLOROQUINE SULFATE [Concomitant]
     Active Substance: HYDROXYCHLOROQUINE SULFATE
  8. LOPERAMIDE HYDROCHLORIDE AND SIMETHICONE [Concomitant]
     Active Substance: DIMETHICONE\LOPERAMIDE HYDROCHLORIDE
  9. ELIQUIS [Concomitant]
     Active Substance: APIXABAN
  10. VITAMIN C [Concomitant]
     Active Substance: ASCORBIC ACID
  11. OXYGEN [Concomitant]
     Active Substance: OXYGEN
  12. DIGOXIN [Concomitant]
     Active Substance: DIGOXIN
  13. ZYRTEC [Concomitant]
     Active Substance: CETIRIZINE HYDROCHLORIDE
  14. IPRATROPIUM BROMIDE [Concomitant]
     Active Substance: IPRATROPIUM BROMIDE
  15. METAMUCIL [Concomitant]
     Active Substance: PLANTAGO SEED
  16. TYLENOL [Concomitant]
     Active Substance: ACETAMINOPHEN
  17. Citracal + D3 [Concomitant]

REACTIONS (1)
  - Drug ineffective [Unknown]
